FAERS Safety Report 14152268 (Version 8)
Quarter: 2018Q2

REPORT INFORMATION
  Report Type: Spontaneous
  Country: US (occurrence: US)
  Receive Date: 20171102
  Receipt Date: 20180501
  Transmission Date: 20180711
  Serious: No
  Sender: FDA-Public Use
  Company Number: US-PFIZER INC-2017469989

PATIENT
  Age: 70 Year
  Sex: Female

DRUGS (1)
  1. IBRANCE [Suspect]
     Active Substance: PALBOCICLIB
     Indication: BREAST CANCER METASTATIC
     Dosage: 125 MG, CYCLIC (ONCE DAILY FOR 21 DAYS, OFF 7)
     Route: 048
     Dates: start: 20170720

REACTIONS (12)
  - Nasopharyngitis [Unknown]
  - Back pain [Unknown]
  - Thinking abnormal [Unknown]
  - Psychiatric symptom [Unknown]
  - Nail disorder [Unknown]
  - Feeling abnormal [Unknown]
  - Malaise [Unknown]
  - Platelet count decreased [Unknown]
  - Fungal skin infection [Unknown]
  - Fatigue [Not Recovered/Not Resolved]
  - Asthenia [Unknown]
  - Memory impairment [Unknown]

NARRATIVE: CASE EVENT DATE: 20170901
